FAERS Safety Report 8286355-9 (Version None)
Quarter: 2012Q2

REPORT INFORMATION
  Report Type: 
  Country: None (occurrence: None)
  Receive Date: 20120411
  Receipt Date: 20120411
  Transmission Date: 20120825
  Serious: Yes (Hospitalization)
  Sender: FDA-Public Use
  Company Number: None

PATIENT
  Age: 76 Year
  Sex: Female
  Weight: 70.3075 kg

DRUGS (1)
  1. FLECAINIDE ACETATE [Suspect]
     Indication: ATRIAL FIBRILLATION
     Dosage: 50 MG 1EVERY 12 HOURS ORAL
     Dates: start: 20120105, end: 20120302

REACTIONS (6)
  - HYPOAESTHESIA [None]
  - DIZZINESS [None]
  - PARAESTHESIA [None]
  - HYPERHIDROSIS [None]
  - CHEST DISCOMFORT [None]
  - HEADACHE [None]
